FAERS Safety Report 8303874-7 (Version None)
Quarter: 2012Q2

REPORT INFORMATION
  Report Type: 
  Country: None (occurrence: None)
  Receive Date: 20120423
  Receipt Date: 20120418
  Transmission Date: 20120825
  Serious: Yes (Hospitalization)
  Sender: FDA-Public Use
  Company Number: PHFR2012GB002420

PATIENT
  Sex: Male

DRUGS (2)
  1. CLOZARIL [Suspect]
     Dosage: 25 MG, UNK
     Route: 048
  2. CLOZARIL [Suspect]
     Indication: SCHIZOPHRENIA
     Dosage: 225 MG, DAILY
     Route: 048
     Dates: start: 20081106

REACTIONS (4)
  - FATIGUE [None]
  - INFECTIOUS PERITONITIS [None]
  - NEUTROPHIL COUNT DECREASED [None]
  - APPENDICITIS PERFORATED [None]
